FAERS Safety Report 6088111-9 (Version None)
Quarter: 2009Q1

REPORT INFORMATION
  Report Type: 
  Country: None (occurrence: None)
  Receive Date: 20090220
  Receipt Date: 20081202
  Transmission Date: 20090719
  Serious: Yes (Other)
  Sender: FDA-Public Use
  Company Number: 2008S1021789

PATIENT
  Age: 32 Year
  Sex: Male
  Weight: 106.5953 kg

DRUGS (4)
  1. AMNESTEEM [Suspect]
     Indication: ACNE CYSTIC
     Dosage: 40 MG;DAILY; ORAL
     Route: 048
     Dates: start: 20081105, end: 20081114
  2. CLODERM /00337102/ [Concomitant]
  3. DIFFERIN [Concomitant]
  4. DORYX [Concomitant]

REACTIONS (9)
  - CHAPPED LIPS [None]
  - CHEST DISCOMFORT [None]
  - DYSPNOEA [None]
  - FATIGUE [None]
  - FEELING ABNORMAL [None]
  - HOT FLUSH [None]
  - ILL-DEFINED DISORDER [None]
  - NERVOUSNESS [None]
  - PANIC ATTACK [None]
